FAERS Safety Report 6460302-4 (Version None)
Quarter: 2009Q4

REPORT INFORMATION
  Report Type: 
  Country: None (occurrence: None)
  Receive Date: 20091130
  Receipt Date: 20091119
  Transmission Date: 20100525
  Serious: Yes (Other)
  Sender: FDA-Public Use
  Company Number: PHHY2009DE36031

PATIENT
  Sex: Male
  Weight: 75 kg

DRUGS (4)
  1. ZOMETA [Suspect]
     Indication: BONE DISORDER
     Dosage: 4 MG EVERY 4 WEEKS
     Route: 042
     Dates: start: 20080814, end: 20090805
  2. ZOLADEX [Concomitant]
     Dosage: 5 CYCLES
     Dates: start: 20080814, end: 20081204
  3. RADIOTHERAPY [Concomitant]
     Dosage: 40 GY
     Dates: start: 20080806, end: 20080902
  4. TAXOTERE [Concomitant]
     Dosage: 65 MG WEEKLY
     Dates: start: 20090506

REACTIONS (5)
  - GENERAL PHYSICAL HEALTH DETERIORATION [None]
  - MALIGNANT NEOPLASM PROGRESSION [None]
  - METASTASES TO BONE [None]
  - METASTASIS [None]
  - OSTEONECROSIS [None]
